FAERS Safety Report 4947022-X (Version None)
Quarter: 2006Q1

REPORT INFORMATION
  Report Type: 
  Country: None (occurrence: None)
  Receive Date: 20060310
  Receipt Date: 20060301
  Transmission Date: 20060701
  Serious: Yes (Other)
  Sender: FDA-Public Use
  Company Number: 06-000183

PATIENT
  Age: 22 Year
  Sex: Female
  Weight: 54.4 kg

DRUGS (1)
  1. ESTROSTEP FE (ETHINYL ESTRADIOL, NORETHINDRONE ACETATE)TABLET [Suspect]
     Indication: CONTRACEPTION
     Dosage: 20-30-35/1000 UG QD ORAL
     Route: 048
     Dates: start: 20050501, end: 20060226

REACTIONS (10)
  - DIABETES MELLITUS [None]
  - DIZZINESS [None]
  - DRUG INEFFECTIVE [None]
  - HEADACHE [None]
  - HYPOAESTHESIA [None]
  - HYPOAESTHESIA ORAL [None]
  - IMPAIRED WORK ABILITY [None]
  - MIGRAINE [None]
  - SPEECH DISORDER [None]
  - VISUAL DISTURBANCE [None]
